FAERS Safety Report 4474746-3 (Version None)
Quarter: 2004Q4

REPORT INFORMATION
  Report Type: 
  Country: None (occurrence: None)
  Receive Date: 20041012
  Receipt Date: 20040929
  Transmission Date: 20050328
  Serious: Yes (Hospitalization)
  Sender: FDA-Public Use
  Company Number: CIP04002015

PATIENT
  Age: 52 Year
  Sex: Male

DRUGS (8)
  1. ACTONEL [Suspect]
     Indication: OSTEOPOROSIS
     Dosage: 2.5 MG DAILY, ORAL
     Route: 048
     Dates: start: 20030702
  2. PREDNISOLONE [Concomitant]
  3. POVIDONE IODINE [Concomitant]
  4. FLORID-D (MICONAZOLE NITRATE) [Concomitant]
  5. LASIX [Concomitant]
  6. FAMOTIDINE [Concomitant]
  7. BLOPRESS (CANDESARTAN CILEXETIL) [Concomitant]
  8. SOLDACTONE (POTASSIUM CANRENOATE) [Concomitant]

REACTIONS (9)
  - ALANINE AMINOTRANSFERASE INCREASED [None]
  - BLOOD ALBUMIN DECREASED [None]
  - BLOOD BILIRUBIN INCREASED [None]
  - BLOOD CHOLESTEROL DECREASED [None]
  - GAMMA-GLUTAMYLTRANSFERASE INCREASED [None]
  - NEPHROTIC SYNDROME [None]
  - OEDEMA PERIPHERAL [None]
  - PROTEIN TOTAL DECREASED [None]
  - URINE ANALYSIS ABNORMAL [None]
